FAERS Safety Report 20651649 (Version 2)
Quarter: 2022Q2

REPORT INFORMATION
  Report Type: Report from Study
  Country: PT (occurrence: PT)
  Receive Date: 20220330
  Receipt Date: 20220413
  Transmission Date: 20220721
  Serious: Yes (Other)
  Sender: FDA-Public Use
  Company Number: PT-Accord-241739

PATIENT
  Age: 15 Year
  Sex: Male

DRUGS (16)
  1. AZITHROMYCIN [Suspect]
     Active Substance: AZITHROMYCIN
     Indication: COVID-19
     Dosage: UNK
     Route: 065
  2. AZITHROMYCIN [Suspect]
     Active Substance: AZITHROMYCIN
     Indication: Pneumonia mycoplasmal
  3. CLINDAMYCIN [Suspect]
     Active Substance: CLINDAMYCIN
     Indication: Acute chest syndrome
     Dosage: UNK
     Route: 065
  4. CLINDAMYCIN [Suspect]
     Active Substance: CLINDAMYCIN
     Indication: Osteomyelitis
  5. CLINDAMYCIN [Suspect]
     Active Substance: CLINDAMYCIN
     Indication: Respiratory disorder
  6. CEFOTAXIME [Suspect]
     Active Substance: CEFOTAXIME SODIUM
     Indication: Osteomyelitis
     Dosage: UNK
     Route: 065
  7. CEFOTAXIME [Suspect]
     Active Substance: CEFOTAXIME SODIUM
     Indication: Acute chest syndrome
  8. CEFOTAXIME [Suspect]
     Active Substance: CEFOTAXIME SODIUM
     Indication: Respiratory disorder
  9. HYDROXYCHLOROQUINE [Suspect]
     Active Substance: HYDROXYCHLOROQUINE
     Indication: COVID-19
     Dosage: 6.5 MILLIGRAM/KILOGRAM, TWO TIMES A DAY
     Route: 065
  10. HYDROXYCHLOROQUINE [Suspect]
     Active Substance: HYDROXYCHLOROQUINE
     Indication: COVID-19 pneumonia
  11. KETAMINE [Suspect]
     Active Substance: KETAMINE
     Indication: Acute chest syndrome
     Dosage: UNK
     Route: 065
  12. KETAMINE [Suspect]
     Active Substance: KETAMINE
     Indication: Osteomyelitis
  13. KETAMINE [Suspect]
     Active Substance: KETAMINE
     Indication: Respiratory disorder
  14. MORPHINE [Suspect]
     Active Substance: MORPHINE
     Indication: Osteomyelitis
     Dosage: UNK
     Route: 065
  15. MORPHINE [Suspect]
     Active Substance: MORPHINE
     Indication: Acute chest syndrome
  16. MORPHINE [Suspect]
     Active Substance: MORPHINE
     Indication: Respiratory disorder

REACTIONS (2)
  - Electrocardiogram QT prolonged [Recovered/Resolved]
  - Off label use [Unknown]
